FAERS Safety Report 8552400-6 (Version None)
Quarter: 2012Q3

REPORT INFORMATION
  Report Type: 
  Country: None (occurrence: None)
  Receive Date: 20120731
  Receipt Date: 20120719
  Transmission Date: 20120928
  Serious: Yes (Death, Hospitalization, Other)
  Sender: FDA-Public Use
  Company Number: MX-SANOFI-AVENTIS-2012SA051376

PATIENT
  Age: 65 Year
  Sex: Female

DRUGS (1)
  1. LANTUS [Suspect]
     Route: 058
     Dates: start: 20070101, end: 20120520

REACTIONS (6)
  - RHEUMATOID ARTHRITIS [None]
  - HYPERTENSION [None]
  - HYPERGLYCAEMIA [None]
  - MALAISE [None]
  - MYOCARDIAL INFARCTION [None]
  - ARTHRALGIA [None]
